FAERS Safety Report 5081634-0 (Version None)
Quarter: 2006Q3

REPORT INFORMATION
  Report Type: 
  Country: None (occurrence: None)
  Receive Date: 20060811
  Receipt Date: 20060728
  Transmission Date: 20061208
  Serious: Yes (Hospitalization, Other)
  Sender: FDA-Public Use
  Company Number: DE-2006-017685

PATIENT
  Age: 45 Year
  Sex: Female
  Weight: 67 kg

DRUGS (4)
  1. BETAFERON (INTERFERON BETA - 1B) INJECTION, 250UG [Suspect]
     Indication: MULTIPLE SCLEROSIS
     Dosage: 8 MIU, 3X/WEEK, SUBCUTANEOUS
     Route: 058
     Dates: end: 20060501
  2. TOREM /GFR/ (TORASEMIDE) [Concomitant]
  3. RAMIPRIL [Concomitant]
  4. CALCIUM GLUCONATE [Concomitant]

REACTIONS (5)
  - GLOMERULONEPHRITIS [None]
  - NEPHRITIS [None]
  - NEPHROTIC SYNDROME [None]
  - RENAL NECROSIS [None]
  - SYSTEMIC LUPUS ERYTHEMATOSUS [None]
